FAERS Safety Report 16204395 (Version 2)
Quarter: 2019Q2

REPORT INFORMATION
  Report Type: Spontaneous
  Country: UA (occurrence: UA)
  Receive Date: 20190416
  Receipt Date: 20190419
  Transmission Date: 20190711
  Serious: Yes (Other)
  Sender: FDA-Public Use
  Company Number: PHHY2019UA078040

PATIENT
  Sex: Male

DRUGS (1)
  1. AZARGA [Suspect]
     Active Substance: BRINZOLAMIDE\TIMOLOL MALEATE
     Indication: OPEN ANGLE GLAUCOMA
     Dosage: 1 GTT, BID
     Route: 057

REACTIONS (8)
  - Conjunctival hyperaemia [Recovered/Resolved]
  - Pruritus [Recovered/Resolved]
  - Conjunctivitis allergic [Recovered/Resolved]
  - Blood pressure increased [Unknown]
  - Flushing [Recovered/Resolved]
  - Conjunctivitis [Recovered/Resolved]
  - Noninfective conjunctivitis [Recovered/Resolved]
  - Eye irritation [Recovered/Resolved]
